FAERS Safety Report 10152770 (Version 2)
Quarter: 2016Q1

REPORT INFORMATION
  Report Type: Spontaneous
  Country: CA (occurrence: CA)
  Receive Date: 20140505
  Receipt Date: 20160205
  Transmission Date: 20160525
  Serious: Yes (Disabling)
  Sender: FDA-Public Use
  Company Number: CA-PFIZER INC-2014121483

PATIENT
  Age: 66 Year
  Sex: Female
  Weight: 77 kg

DRUGS (8)
  1. PREMARIN [Concomitant]
     Active Substance: ESTROGENS, CONJUGATED
     Dosage: 0.625 MG, UNK
  2. SYNTHROID [Concomitant]
     Active Substance: LEVOTHYROXINE SODIUM
     Dosage: 0.075 MG, UNK
  3. PANTOPRAZOLE [Suspect]
     Active Substance: PANTOPRAZOLE SODIUM
     Indication: GASTROOESOPHAGEAL REFLUX DISEASE
     Dosage: 40 MG, 1X/DAY
     Route: 048
     Dates: start: 20060715, end: 20130112
  4. AMLODIPINE [Concomitant]
     Active Substance: AMLODIPINE BESYLATE
     Dosage: 5 MG, UNK
  5. APO-MEDROXY [Concomitant]
     Dosage: 2.5 MG, UNK
  6. MEDROXY [Concomitant]
     Active Substance: MEDROXYPROGESTERONE ACETATE
     Dosage: 2.5 MG, UNK
  7. BETAHISTINE TEVA [Concomitant]
     Dosage: 16 MG, UNK
  8. PAROXETINE [Concomitant]
     Active Substance: PAROXETINE\PAROXETINE HYDROCHLORIDE
     Dosage: UNK

REACTIONS (23)
  - Fatigue [Recovered/Resolved with Sequelae]
  - Myalgia [Recovered/Resolved with Sequelae]
  - Mood altered [Unknown]
  - Abdominal discomfort [Unknown]
  - Palpitations [Recovered/Resolved with Sequelae]
  - Appendicitis [Recovered/Resolved with Sequelae]
  - Liver disorder [Unknown]
  - Abdominal pain [Recovered/Resolved]
  - Dizziness [Recovered/Resolved with Sequelae]
  - Bladder discomfort [Recovered/Resolved]
  - Anorectal discomfort [Unknown]
  - Discomfort [Recovered/Resolved]
  - Vaginal haemorrhage [Recovered/Resolved with Sequelae]
  - Bladder pain [Recovered/Resolved]
  - Hypersomnia [Recovered/Resolved with Sequelae]
  - Psoriasis [Recovered/Resolved with Sequelae]
  - Urticaria [Recovered/Resolved with Sequelae]
  - Condition aggravated [Recovered/Resolved with Sequelae]
  - Vulvovaginal discomfort [Unknown]
  - Abdominal pain lower [Unknown]
  - Onychomycosis [Recovered/Resolved with Sequelae]
  - Malaise [Recovered/Resolved with Sequelae]
  - Nausea [Recovered/Resolved]

NARRATIVE: CASE EVENT DATE: 200609
